FAERS Safety Report 12650790 (Version 1)
Quarter: 2016Q3

REPORT INFORMATION
  Report Type: Spontaneous
  Country: US (occurrence: US)
  Receive Date: 20160815
  Receipt Date: 20160815
  Transmission Date: 20161109
  Serious: No
  Sender: FDA-Public Use
  Company Number: US-JAZZ-2016-US-004896

PATIENT
  Sex: Male

DRUGS (29)
  1. NEXIUM [Concomitant]
     Active Substance: ESOMEPRAZOLE MAGNESIUM
  2. FOLIC ACID. [Concomitant]
     Active Substance: FOLIC ACID
  3. NASONEX [Concomitant]
     Active Substance: MOMETASONE FUROATE
  4. METHYLPHENIDATE. [Concomitant]
     Active Substance: METHYLPHENIDATE
  5. COD LIVER OIL [Concomitant]
     Active Substance: COD LIVER OIL
  6. MULTIVITAMINS [Concomitant]
     Active Substance: VITAMINS
  7. SIMPONI [Concomitant]
     Active Substance: GOLIMUMAB
  8. ZYRTEC [Concomitant]
     Active Substance: CETIRIZINE HYDROCHLORIDE
  9. PROBIOTIC FORMULA [Concomitant]
  10. ADDERALL [Concomitant]
     Active Substance: AMPHETAMINE ASPARTATE\AMPHETAMINE SULFATE\DEXTROAMPHETAMINE SACCHARATE\DEXTROAMPHETAMINE SULFATE
  11. ASTEPRO [Concomitant]
     Active Substance: AZELASTINE HYDROCHLORIDE
  12. ENBREL [Concomitant]
     Active Substance: ETANERCEPT
  13. OMEPRAZOLE. [Concomitant]
     Active Substance: OMEPRAZOLE
  14. XYREM [Suspect]
     Active Substance: SODIUM OXYBATE
     Indication: NARCOLEPSY
     Dosage: 2.25 G, BID
     Route: 048
     Dates: start: 201201, end: 201202
  15. XYREM [Suspect]
     Active Substance: SODIUM OXYBATE
     Dosage: 4.5 G, BID
     Route: 048
     Dates: start: 201204
  16. ASTELIN [Concomitant]
     Active Substance: AZELASTINE HYDROCHLORIDE
  17. CELEBREX [Concomitant]
     Active Substance: CELECOXIB
  18. LIPITOR [Concomitant]
     Active Substance: ATORVASTATIN CALCIUM
  19. LYRICA [Concomitant]
     Active Substance: PREGABALIN
  20. XYREM [Suspect]
     Active Substance: SODIUM OXYBATE
     Indication: CATAPLEXY
     Dosage: DOSE ADJUSTMENTS
     Route: 048
  21. ANDROGEL [Concomitant]
     Active Substance: TESTOSTERONE
  22. ASPIRIN. [Concomitant]
     Active Substance: ASPIRIN
  23. PRAMIPEXOLE. [Concomitant]
     Active Substance: PRAMIPEXOLE
  24. VITAMIN B COMPLEX [Concomitant]
     Active Substance: CYANOCOBALAMIN\DEXPANTHENOL\NIACINAMIDE\PYRIDOXINE HYDROCHLORIDE\RIBOFLAVIN 5^-PHOSPHATE SODIUM\THIAMINE HYDROCHLORIDE\VITAMIN B COMPLEX
  25. VITAMIN C TR [Concomitant]
  26. METHOTREXATE. [Concomitant]
     Active Substance: METHOTREXATE
  27. CENTRUM [Concomitant]
     Active Substance: VITAMINS
  28. OXYCONTIN [Concomitant]
     Active Substance: OXYCODONE HYDROCHLORIDE
  29. ZALEPLON. [Concomitant]
     Active Substance: ZALEPLON

REACTIONS (2)
  - Oedema [Recovering/Resolving]
  - Hypertension [Not Recovered/Not Resolved]
